FAERS Safety Report 8772402 (Version 1)
Quarter: 2012Q4

REPORT INFORMATION
  Report Type: 
  Country: BR (occurrence: BR)
  Receive Date: 20120906
  Receipt Date: 20120906
  Transmission Date: 20130627
  Serious: Yes (Hospitalization)
  Sender: FDA-Public Use
  Company Number: PHHY2012BR076144

PATIENT
  Sex: Female
  Weight: 65 kg

DRUGS (6)
  1. TRILEPTAL [Suspect]
     Indication: MENINGIOMA
     Dosage: 300 mg, Q8H (1 tablet every 8 hours)
     Route: 048
  2. TRILEPTAL [Suspect]
     Dosage: 300 mg, Q8H (1 tablet every 8 hours)
     Route: 048
  3. OMEPRAZOLE [Concomitant]
     Indication: DYSPEPSIA
     Dosage: 1 capsule or 2 a day, oral, in use since 8 years ago
     Route: 048
  4. ALENDRONATE SODIUM [Concomitant]
     Indication: SPINAL DISORDER
     Dosage: 1 tablet per week, oral, in use from 5 years ago
     Route: 048
  5. LABEL [Concomitant]
     Indication: DYSPEPSIA
     Dosage: 1 teaspoon when felt pain, oral, ongoing from 6 months ago
     Route: 048
  6. PEPISOGEL [Concomitant]
     Indication: DYSPEPSIA
     Dosage: 1 teaspoon when felt pain, oral, in use from 6 months ago
     Route: 048

REACTIONS (7)
  - Hiatus hernia [Not Recovered/Not Resolved]
  - Vomiting [Recovered/Resolved]
  - Dysphagia [Not Recovered/Not Resolved]
  - Faecaloma [Not Recovered/Not Resolved]
  - Intestinal obstruction [Not Recovered/Not Resolved]
  - Dyspepsia [Not Recovered/Not Resolved]
  - Tremor [Recovered/Resolved]
